FAERS Safety Report 5161665-2 (Version None)
Quarter: 2006Q4

REPORT INFORMATION
  Report Type: 
  Country: None (occurrence: None)
  Receive Date: 20061130
  Receipt Date: 20060406
  Transmission Date: 20070319
  Serious: No
  Sender: FDA-Public Use
  Company Number: US-BRISTOL-MYERS SQUIBB COMPANY-13348842

PATIENT
  Age: 63 Year
  Sex: Female

DRUGS (1)
  1. METFORMIN HCL [Suspect]
     Indication: BLOOD GLUCOSE INCREASED
     Route: 048
     Dates: start: 20030101

REACTIONS (1)
  - BLOOD GLUCOSE FLUCTUATION [None]
